FAERS Safety Report 5428205-1 (Version None)
Quarter: 2007Q3

REPORT INFORMATION
  Report Type: 
  Country: None (occurrence: None)
  Receive Date: 20070731
  Receipt Date: 20070520
  Transmission Date: 20080115
  Serious: No
  Sender: FDA-Public Use
  Company Number: US200705005113

PATIENT
  Age: 58 Year
  Sex: Female
  Weight: 71.2 kg

DRUGS (5)
  1. BYETTA [Suspect]
     Indication: TYPE 2 DIABETES MELLITUS
     Dosage: 10 UG, 2/D, SUBCUTANEOUS
     Route: 058
     Dates: start: 20070117, end: 20070301
  2. GLUCOPHAGE [Concomitant]
  3. GLUCOTROL [Concomitant]
  4. NOVOLIN 70/30 [Concomitant]
  5. SYMLIN [Concomitant]

REACTIONS (1)
  - BLOOD GLUCOSE INCREASED [None]
